FAERS Safety Report 9541011 (Version 1)
Quarter: 2013Q3

REPORT INFORMATION
  Report Type: Spontaneous
  Country: US (occurrence: US)
  Receive Date: 20130922
  Receipt Date: 20130922
  Transmission Date: 20140515
  Serious: No
  Sender: FDA-Public Use
  Company Number: US-ALLERGAN-1311593US

PATIENT
  Age: 69 Year
  Sex: Female

DRUGS (2)
  1. VANIQA [Suspect]
     Indication: HYPERTRICHOSIS
     Dosage: 2 DF, BID
     Route: 061
     Dates: start: 201205, end: 20120610
  2. VANIQA [Suspect]
     Dosage: 2 DF, BID
     Route: 061
     Dates: start: 201205, end: 20120610

REACTIONS (2)
  - Alopecia [Not Recovered/Not Resolved]
  - Rash [Not Recovered/Not Resolved]
